FAERS Safety Report 21362077 (Version 1)
Quarter: 2022Q3

REPORT INFORMATION
  Report Type: Spontaneous
  Country: US (occurrence: US)
  Receive Date: 20220922
  Receipt Date: 20220922
  Transmission Date: 20221026
  Serious: No
  Sender: FDA-Public Use
  Company Number: US-drreddys-SPO/USA/22/0154515

PATIENT
  Age: 19 Year

DRUGS (1)
  1. ZENATANE [Suspect]
     Active Substance: ISOTRETINOIN
     Indication: Acne
     Dosage: RMA ISSUE DATE: 09 DECEMBER 2021 04:18:00 PM, 12 JANUARY 2022 06:07:02 PM, 16 FEBRUARY 2022 04:23:41

REACTIONS (1)
  - Laboratory test abnormal [Unknown]
